FAERS Safety Report 19477943 (Version 1)
Quarter: 2021Q2

REPORT INFORMATION
  Report Type: Report from Study
  Country: US (occurrence: US)
  Receive Date: 20210630
  Receipt Date: 20210630
  Transmission Date: 20210717
  Serious: Yes (Other)
  Sender: FDA-Public Use
  Company Number: US-GILEAD-2021-0538574

PATIENT
  Age: 31 Year

DRUGS (1)
  1. BICTEGRAVIR W/EMTRICITABINE/TENOFOVIR ALAFENAMIDE [Suspect]
     Active Substance: BICTEGRAVIR\EMTRICITABINE\TENOFOVIR ALAFENAMIDE
     Indication: HIV INFECTION
     Dosage: 200 MG, QD
     Route: 048

REACTIONS (3)
  - Antidepressant therapy [Not Recovered/Not Resolved]
  - Amnesia [Not Recovered/Not Resolved]
  - Neoplasm malignant [Not Recovered/Not Resolved]
